FAERS Safety Report 26185005 (Version 2)
Quarter: 2025Q4

REPORT INFORMATION
  Report Type: Spontaneous
  Country: US (occurrence: US)
  Receive Date: 20251222
  Receipt Date: 20251222
  Transmission Date: 20260117
  Serious: Yes (Other)
  Sender: ROCHE
  Company Number: US-ROCHE-10000463960

PATIENT
  Age: 28 Year
  Sex: Female

DRUGS (4)
  1. RITUXIMAB [Suspect]
     Active Substance: RITUXIMAB
     Indication: Lupus nephritis
  2. CELLCEPT [Suspect]
     Active Substance: MYCOPHENOLATE MOFETIL
     Indication: Lupus nephritis
  3. PREDNISONE [Concomitant]
     Active Substance: PREDNISONE
  4. LUPKYNIS [Concomitant]
     Active Substance: VOCLOSPORIN

REACTIONS (2)
  - Off label use [Unknown]
  - Lupus nephritis [Unknown]
